FAERS Safety Report 20677277 (Version 3)
Quarter: 2022Q2

REPORT INFORMATION
  Report Type: Spontaneous
  Country: DE (occurrence: DE)
  Receive Date: 20220406
  Receipt Date: 20220422
  Transmission Date: 20220721
  Serious: Yes (Hospitalization, Other)
  Sender: FDA-Public Use
  Company Number: DE-009507513-2203DEU009804

PATIENT
  Age: 77 Year
  Sex: Male
  Weight: 81 kg

DRUGS (10)
  1. METFORMIN\SITAGLIPTIN [Suspect]
     Active Substance: METFORMIN\SITAGLIPTIN
     Indication: Type 2 diabetes mellitus
     Dosage: 1 DOSAGE FORM, ONCE A DAY MORNINGS; 1-0-0-0
     Route: 048
  2. RAMIPRIL [Suspect]
     Active Substance: RAMIPRIL
     Indication: Hypertension
     Dosage: 5 MILLIGRAM, ONCE IN THE MORNING AND ONCE IN THE EVENING; 1-0-1-0
     Dates: end: 20220319
  3. LERCANIDIPINE [Suspect]
     Active Substance: LERCANIDIPINE
     Indication: Hypertension
     Dosage: TWO TABLETS IN THE EVENING; 0-0-2-0
     Route: 048
     Dates: end: 20220319
  4. TORSEMIDE [Concomitant]
     Active Substance: TORSEMIDE
     Indication: Hypertension
     Dosage: 20 MILLIGRAM ONE TABLET IN THE MORNING AND HALF A TABLET IN THE EVENING; 1-0.5-0-0
     Route: 048
  5. LEVOTHYROXINE [Concomitant]
     Active Substance: LEVOTHYROXINE
     Indication: Hypothyroidism
     Dosage: 75 MICROGRAM, ONCE IN THE MORNING; 1-0-0-0
     Route: 048
  6. METOPROLOL [Concomitant]
     Active Substance: METOPROLOL
     Indication: Hypertension
     Dosage: 190 MG RETARD, HALF A TABLET IN THE MORNING AND HALF A TABLET IN THE EVENING; 0.5-0-0.5
     Route: 048
  7. MOXONIDINE [Concomitant]
     Active Substance: MOXONIDINE
     Indication: Hypertension
     Dosage: 0.3 MILLIGRAM,ONCE IN THE MORNING AND ONCE IN THE EVENING; 1-0-1-0
     Route: 048
  8. DOXAZOSIN [Concomitant]
     Active Substance: DOXAZOSIN MESYLATE
     Indication: Hypertension
     Dosage: 8 MILLIGRAM, ONE TABLET IN THE MORNING AND HALF A TABLET IN THE EVENING; 1-0-0.5-0
     Route: 048
  9. EDOXABAN TOSYLATE [Concomitant]
     Active Substance: EDOXABAN TOSYLATE
     Indication: Atrial fibrillation
     Dosage: 60 MILLIGRAM, ONCE IN THE MORNING; 1-0-0
     Route: 048
  10. FERROUS SULFATE [Concomitant]
     Active Substance: FERROUS SULFATE
     Indication: Anaemia
     Dosage: 100 MILLIGRAM, ONCE IN THE MORNING; 1-0-0
     Route: 048

REACTIONS (2)
  - Haemolytic anaemia [Recovering/Resolving]
  - Incorrect dose administered [Unknown]

NARRATIVE: CASE EVENT DATE: 20220318
